FAERS Safety Report 8388163-7 (Version None)
Quarter: 2012Q2

REPORT INFORMATION
  Report Type: 
  Country: None (occurrence: None)
  Receive Date: 20120525
  Receipt Date: 20120518
  Transmission Date: 20120825
  Serious: Yes (Life-Threatening, Hospitalization)
  Sender: FDA-Public Use
  Company Number: DE-TEVA-338983GER

PATIENT
  Age: 62 Year
  Sex: Female
  Weight: 85 kg

DRUGS (5)
  1. ACIMETHIN [Concomitant]
     Indication: PH URINE
     Route: 048
     Dates: start: 20111112, end: 20111128
  2. MIRTAZAPINE [Concomitant]
     Indication: DEPRESSION
     Dosage: 30 MILLIGRAM;
     Route: 048
     Dates: end: 20111128
  3. COTRIM DS [Suspect]
     Indication: URINARY TRACT INFECTION
     Route: 048
     Dates: start: 20111118, end: 20111127
  4. LEVOTHYROXINE SODIUM [Concomitant]
     Indication: HYPOTHYROIDISM
     Dosage: 100 MICROGRAM;
     Route: 048
  5. LYRICA [Concomitant]
     Indication: NEURALGIA
     Dosage: 75 MILLIGRAM;
     Route: 048
     Dates: end: 20111128

REACTIONS (3)
  - THROMBOCYTOPENIA [None]
  - SPONTANEOUS HAEMATOMA [None]
  - PETECHIAE [None]
